FAERS Safety Report 21486306 (Version 1)
Quarter: 2022Q4

REPORT INFORMATION
  Report Type: Report from Study
  Country: US (occurrence: US)
  Receive Date: 20221020
  Receipt Date: 20221020
  Transmission Date: 20230113
  Serious: No
  Sender: FDA-Public Use
  Company Number: US-ABBVIE-4137669

PATIENT
  Sex: Female

DRUGS (1)
  1. HUMIRA [Suspect]
     Active Substance: ADALIMUMAB
     Indication: Psoriatic arthropathy
     Route: 058
     Dates: start: 20220311

REACTIONS (7)
  - Tachycardia [Not Recovered/Not Resolved]
  - Blood potassium decreased [Unknown]
  - COVID-19 [Recovered/Resolved]
  - Panic attack [Not Recovered/Not Resolved]
  - Atrial fibrillation [Unknown]
  - Ocular hyperaemia [Not Recovered/Not Resolved]
  - Blood magnesium decreased [Unknown]

NARRATIVE: CASE EVENT DATE: 20220101
